FAERS Safety Report 5548304-3 (Version None)
Quarter: 2007Q4

REPORT INFORMATION
  Report Type: 
  Country: None (occurrence: None)
  Receive Date: 20071206
  Receipt Date: 20071123
  Transmission Date: 20080405
  Serious: Yes (Life-Threatening, Other)
  Sender: FDA-Public Use
  Company Number: SPV1-2007-05003

PATIENT
  Age: 54 Year
  Sex: Male

DRUGS (1)
  1. ANAGRELIDE HYDROCHLORIDE [Suspect]
     Indication: THROMBOCYTHAEMIA
     Dosage: 2.5 MG TOTAL DAILY DOSE, ORAL
     Route: 048
     Dates: start: 20030401, end: 20070615

REACTIONS (4)
  - CARDIAC ARREST [None]
  - EPILEPSY [None]
  - HYPOKALAEMIA [None]
  - ISCHAEMIC STROKE [None]
